FAERS Safety Report 5856761-8 (Version None)
Quarter: 2008Q3

REPORT INFORMATION
  Report Type: 
  Country: None (occurrence: None)
  Receive Date: 20080822
  Receipt Date: 20080822
  Transmission Date: 20090109
  Serious: Yes (Other)
  Sender: FDA-Public Use
  Company Number: None

PATIENT
  Age: 16 Year
  Sex: Male
  Weight: 58.5 kg

DRUGS (12)
  1. BLEOMYCIN SULFATE [Suspect]
     Indication: HODGKIN'S DISEASE
     Dosage: 10 UNTIS/M2 Q21DX4,QL4DX4 IV
     Route: 042
     Dates: start: 20030609, end: 20031103
  2. ETOPOSIDE [Suspect]
     Dosage: 200MG/M2 DAILYX3 Q21D X4 IV
     Route: 042
     Dates: start: 20030609, end: 20030818
  3. DOXORUBICIN HCL [Concomitant]
  4. CYCLOPHOSPHAMIDE [Concomitant]
  5. VINCRISTINE [Concomitant]
  6. PROCARBAZINE [Concomitant]
  7. VINBLASTINE SULFATE [Concomitant]
  8. DACARBAZINE [Concomitant]
  9. PREDNISONE TAB [Concomitant]
  10. MESNA [Concomitant]
  11. POST CYCLOPHOSPHAMIDE [Concomitant]
  12. NEUPOGEN [Concomitant]

REACTIONS (1)
  - MYELOID LEUKAEMIA [None]
